FAERS Safety Report 6551376-0 (Version None)
Quarter: 2010Q1

REPORT INFORMATION
  Report Type: 
  Country: None (occurrence: None)
  Receive Date: 20100126
  Receipt Date: 20100115
  Transmission Date: 20100710
  Serious: Yes (Hospitalization)
  Sender: FDA-Public Use
  Company Number: US-ROCHE-679419

PATIENT
  Sex: Male
  Weight: 64.5 kg

DRUGS (8)
  1. TOCILIZUMAB [Suspect]
     Indication: RHEUMATOID ARTHRITIS
     Route: 042
     Dates: start: 20091118, end: 20091118
  2. TOCILIZUMAB [Suspect]
     Route: 042
     Dates: start: 20091216
  3. METHOTREXATE [Concomitant]
  4. NABUMETONE [Concomitant]
     Route: 048
     Dates: start: 19990101
  5. PLAQUENIL [Concomitant]
     Indication: RHEUMATOID ARTHRITIS
     Route: 048
     Dates: start: 20090101
  6. LORTAB [Concomitant]
     Indication: RHEUMATOID ARTHRITIS
     Route: 048
     Dates: start: 20050101
  7. FLEXERIL [Concomitant]
     Route: 048
     Dates: start: 20040101
  8. PREDNISONE TAB [Concomitant]
     Route: 048
     Dates: start: 20090619

REACTIONS (4)
  - BRONCHITIS [None]
  - CHRONIC OBSTRUCTIVE PULMONARY DISEASE [None]
  - HAEMOPTYSIS [None]
  - PHARYNGEAL ULCERATION [None]
